FAERS Safety Report 7465227-3 (Version None)
Quarter: 2011Q2

REPORT INFORMATION
  Report Type: 
  Country: None (occurrence: None)
  Receive Date: 20110509
  Receipt Date: 20110505
  Transmission Date: 20111010
  Serious: Yes (Life-Threatening, Other)
  Sender: FDA-Public Use
  Company Number: FR-BAYER-201027815GPV

PATIENT
  Age: 33 Year
  Sex: Female
  Weight: 68.934 kg

DRUGS (1)
  1. NATAZIA [Suspect]
     Indication: CONTRACEPTION
     Dosage: UNK
     Route: 048
     Dates: start: 20110101

REACTIONS (2)
  - BREAST MASS [None]
  - BREAST CANCER [None]
